FAERS Safety Report 24718006 (Version 1)
Quarter: 2024Q4

REPORT INFORMATION
  Report Type: Report from Study
  Country: CA (occurrence: CA)
  Receive Date: 20241210
  Receipt Date: 20241210
  Transmission Date: 20250114
  Serious: Yes (Other)
  Sender: ABBVIE
  Company Number: CA-ABBVIE-6034220

PATIENT
  Age: 21 Year
  Sex: Female

DRUGS (1)
  1. RINVOQ [Suspect]
     Active Substance: UPADACITINIB
     Indication: Colitis ulcerative
     Dosage: FORM STRENGTH: 30 MILLIGRAM
     Route: 048
     Dates: start: 20240211

REACTIONS (8)
  - Anal fistula [Unknown]
  - Anal abscess [Unknown]
  - Unevaluable event [Unknown]
  - Arthralgia [Unknown]
  - Haematochezia [Unknown]
  - Nausea [Unknown]
  - Medical device site pain [Unknown]
  - Frequent bowel movements [Unknown]

NARRATIVE: CASE EVENT DATE: 20240101
